FAERS Safety Report 6125774-3 (Version None)
Quarter: 2009Q1

REPORT INFORMATION
  Report Type: 
  Country: None (occurrence: None)
  Receive Date: 20090319
  Receipt Date: 20090319
  Transmission Date: 20090719
  Serious: No
  Sender: FDA-Public Use
  Company Number: None

PATIENT
  Sex: Female
  Weight: 74.3899 kg

DRUGS (2)
  1. AVELOX [Suspect]
     Indication: COUGH
     Dosage: 1 DOSAGE TAKEN
     Dates: start: 20090312, end: 20090312
  2. AVELOX [Suspect]
     Indication: SINUS DISORDER
     Dosage: 1 DOSAGE TAKEN
     Dates: start: 20090312, end: 20090312

REACTIONS (8)
  - ABDOMINAL DISCOMFORT [None]
  - DIZZINESS [None]
  - FEELING ABNORMAL [None]
  - FEELING JITTERY [None]
  - INSOMNIA [None]
  - OEDEMA PERIPHERAL [None]
  - PAIN IN EXTREMITY [None]
  - TREMOR [None]
